FAERS Safety Report 9900386 (Version 1)
Quarter: 2014Q1

REPORT INFORMATION
  Report Type: Report from Study
  Country: US (occurrence: US)
  Receive Date: 20140217
  Receipt Date: 20140217
  Transmission Date: 20141002
  Serious: Yes (Other)
  Sender: FDA-Public Use
  Company Number: US-ROCHE-1331022

PATIENT
  Sex: Male

DRUGS (5)
  1. AVASTIN [Suspect]
     Indication: GLIOBLASTOMA
     Dosage: THE PATIENT RECEIVED THE DOSE WITH 0.9 % SODIUM CHLORIDE INJECTION.  THE TOTAL DOSE RECEIVED ON 15/J
     Route: 042
  2. IRINOTECAN [Concomitant]
     Route: 042
  3. DEXAMETHASONE [Concomitant]
     Dosage: 12 MG/1.2 ML
     Route: 065
  4. ONDANSETRON [Concomitant]
     Dosage: 8 MG/4 ML
     Route: 042
  5. CARBOPLATIN [Concomitant]
     Dosage: 750 MG/75 ML
     Route: 042

REACTIONS (1)
  - Convulsion [Unknown]
